FAERS Safety Report 19279791 (Version 1)
Quarter: 2021Q2

REPORT INFORMATION
  Report Type: Report from Study
  Country: TH (occurrence: TH)
  Receive Date: 20210520
  Receipt Date: 20210520
  Transmission Date: 20210717
  Serious: Yes (Other)
  Sender: FDA-Public Use
  Company Number: TH-OTSUKA-2021_016388

PATIENT
  Age: 61 Year
  Sex: Male

DRUGS (2)
  1. TOLVAPTAN [Suspect]
     Active Substance: TOLVAPTAN
     Indication: CARDIAC FAILURE ACUTE
     Dosage: 7.5 MG, QD
     Route: 048
     Dates: start: 20210113, end: 20210120
  2. FUROSEMIDE. [Suspect]
     Active Substance: FUROSEMIDE
     Indication: CARDIAC FAILURE ACUTE
     Dosage: UNK
     Route: 042
     Dates: start: 20210113, end: 20210120

REACTIONS (1)
  - Acute kidney injury [Recovered/Resolved]

NARRATIVE: CASE EVENT DATE: 20210116
